FAERS Safety Report 4380176-5 (Version None)
Quarter: 2004Q2

REPORT INFORMATION
  Report Type: 
  Country: None (occurrence: None)
  Receive Date: 20040614
  Receipt Date: 20040507
  Transmission Date: 20050107
  Serious: No
  Sender: FDA-Public Use
  Company Number: M04-341-144

PATIENT
  Age: 57 Year
  Sex: Female

DRUGS (1)
  1. VELCADE [Suspect]
     Indication: MULTIPLE MYELOMA
     Dosage: INTRAVENOUS (NO OTHERWISE SPECIFIED)
     Route: 042
     Dates: start: 20040401, end: 20040504

REACTIONS (2)
  - DYSGEUSIA [None]
  - HEADACHE [None]
